FAERS Safety Report 9690746 (Version 2)
Quarter: 2014Q1

REPORT INFORMATION
  Report Type: Spontaneous
  Country: PT (occurrence: PT)
  Receive Date: 20131115
  Receipt Date: 20140123
  Transmission Date: 20141002
  Serious: Yes (Death, Other)
  Sender: FDA-Public Use
  Company Number: PT-CELGENEUS-130-50794-13110061

PATIENT
  Age: 62 Year
  Sex: Male

DRUGS (1)
  1. VIDAZA [Suspect]
     Indication: MYELODYSPLASTIC SYNDROME
     Route: 058
     Dates: start: 200904, end: 201006

REACTIONS (3)
  - Sepsis [Fatal]
  - Acute myeloid leukaemia [Unknown]
  - Anaemia [Not Recovered/Not Resolved]
